FAERS Safety Report 6382898-3 (Version None)
Quarter: 2009Q3

REPORT INFORMATION
  Report Type: 
  Country: None (occurrence: None)
  Receive Date: 20090925
  Receipt Date: 20090925
  Transmission Date: 20100115
  Serious: Yes (Disabling)
  Sender: FDA-Public Use
  Company Number: None

PATIENT
  Age: 81 Year
  Sex: Male
  Weight: 81.6475 kg

DRUGS (1)
  1. HYALURONIDASE [Suspect]
     Indication: CATARACT OPERATION
     Dosage: 1CC 1 DOSE OPHTHALMIC
     Route: 047
     Dates: start: 20090916, end: 20090916

REACTIONS (2)
  - CELLULITIS ORBITAL [None]
  - PAROPHTHALMIA [None]
